FAERS Safety Report 24172986 (Version 4)
Quarter: 2024Q3

REPORT INFORMATION
  Report Type: Spontaneous
  Country: US (occurrence: US)
  Receive Date: 20240805
  Receipt Date: 20240829
  Transmission Date: 20241016
  Serious: No
  Sender: JOHNSON AND JOHNSON
  Company Number: US-JNJFOC-20240778224

PATIENT
  Sex: Female

DRUGS (1)
  1. SIMPONI [Suspect]
     Active Substance: GOLIMUMAB
     Indication: Colitis ulcerative
     Route: 058

REACTIONS (6)
  - Device leakage [Unknown]
  - Accidental exposure to product [Unknown]
  - Device malfunction [Unknown]
  - Device dislocation [Unknown]
  - Exposure via skin contact [Unknown]
  - Skin injury [Unknown]

NARRATIVE: CASE EVENT DATE: 20240626
